FAERS Safety Report 5430147-2 (Version None)
Quarter: 2007Q3

REPORT INFORMATION
  Report Type: 
  Country: None (occurrence: None)
  Receive Date: 20070829
  Receipt Date: 20070820
  Transmission Date: 20080115
  Serious: Yes (Hospitalization)
  Sender: FDA-Public Use
  Company Number: JP-ABBOTT-07P-087-0378349-00

PATIENT
  Age: 67 Year
  Sex: Male

DRUGS (7)
  1. CLARITHROMYCIN [Suspect]
     Indication: NASOPHARYNGITIS
     Route: 048
     Dates: start: 20070130, end: 20070205
  2. DIMEMORFAN PHOSPHATE [Concomitant]
     Indication: NASOPHARYNGITIS
     Route: 048
  3. AZULENE [Concomitant]
     Indication: NASOPHARYNGITIS
     Route: 048
  4. CLEMASTINE FUMARATE [Concomitant]
     Indication: NASOPHARYNGITIS
     Route: 048
  5. SULPYRINE HYDRATE [Concomitant]
     Indication: NASOPHARYNGITIS
     Route: 048
  6. CHERRY BARK EXTRACT/CODEINE PHOSPHATE HYDRATE [Concomitant]
     Indication: NASOPHARYNGITIS
     Route: 048
  7. CANDESARTAN CILEXETIL [Concomitant]
     Indication: HYPERTENSION
     Route: 048

REACTIONS (5)
  - CHEILITIS [None]
  - HEPATITIS ACUTE [None]
  - MALAISE [None]
  - PRURITUS [None]
  - PYREXIA [None]
